FAERS Safety Report 21677069 (Version 2)
Quarter: 2022Q4

REPORT INFORMATION
  Report Type: Spontaneous
  Country: US (occurrence: US)
  Receive Date: 20221203
  Receipt Date: 20221205
  Transmission Date: 20230113
  Serious: No
  Sender: FDA-Public Use
  Company Number: US-GBT-017448

PATIENT
  Age: 17 Year
  Sex: Female

DRUGS (1)
  1. OXBRYTA [Suspect]
     Active Substance: VOXELOTOR
     Indication: Product used for unknown indication
     Route: 048

REACTIONS (6)
  - Sickle cell anaemia with crisis [Not Recovered/Not Resolved]
  - Product dose omission issue [Unknown]
  - Social problem [Unknown]
  - Product use complaint [Unknown]
  - Retching [Not Recovered/Not Resolved]
  - Product dose omission issue [Unknown]

NARRATIVE: CASE EVENT DATE: 20221003
